FAERS Safety Report 4512413-8 (Version None)
Quarter: 2004Q4

REPORT INFORMATION
  Report Type: 
  Country: None (occurrence: None)
  Receive Date: 20041124
  Receipt Date: 20041102
  Transmission Date: 20050328
  Serious: Yes (Death)
  Sender: FDA-Public Use
  Company Number: M2004-1695

PATIENT
  Age: 29 Year
  Sex: Male

DRUGS (16)
  1. CHLORPROMAZINE [Suspect]
     Indication: DRUG WITHDRAWAL SYNDROME
     Dosage: 50 MG PRN, ORAL
     Route: 048
  2. CLONIDINE [Suspect]
     Indication: DRUG WITHDRAWAL SYNDROME
     Dosage: 0.1 MG, PRN, ORAL
     Route: 048
  3. OMEPRAZOLE [Suspect]
     Indication: DRUG WITHDRAWAL SYNDROME
     Dosage: 20 MG DAILY ORAL
     Route: 048
  4. TEMAZEPAM [Suspect]
     Indication: DRUG WITHDRAWAL SYNDROME
     Dosage: 20 MG PRN
  5. VOLTAROL (DICLOFENAC) [Suspect]
     Indication: DRUG WITHDRAWAL SYNDROME
     Dosage: 25 MG TID
  6. DIAZEPAM [Suspect]
     Indication: DRUG WITHDRAWAL SYNDROME
     Dosage: 10 MG PRN
  7. HEMINEVRIN (CLOMETHIAZOLE) [Suspect]
     Indication: DRUG WITHDRAWAL SYNDROME
     Dates: start: 20010831
  8. LORAZEPAM [Suspect]
     Indication: DRUG WITHDRAWAL SYNDROME
     Dosage: 2.5 MG PRN
  9. ROHYPNOL (FLUNITRAZEPAM) [Suspect]
     Indication: DRUG WITHDRAWAL SYNDROME
     Dosage: 1 MG PRN
  10. METOCLOPRAMIDE [Suspect]
     Indication: DRUG WITHDRAWAL SYNDROME
     Dosage: 10 MG Q8H
  11. BUCCASTEM (PROCHLORPERAZINE) [Suspect]
     Indication: DRUG WITHDRAWAL SYNDROME
  12. HYOSCINE HBR HYT [Suspect]
     Indication: DRUG WITHDRAWAL SYNDROME
     Dosage: 10 MG, PRN
  13. NALTREXONE (NALTREXONE) [Suspect]
     Indication: DRUG WITHDRAWAL SYNDROME
  14. ACUPAN [Suspect]
     Indication: DRUG WITHDRAWAL SYNDROME
  15. ZOFRAN [Suspect]
     Indication: DRUG WITHDRAWAL SYNDROME
     Dosage: 8 MG, PRN
  16. OCTREOTIDE ACETATE [Suspect]
     Indication: ANTIDIARRHOEAL SUPPORTIVE CARE
     Dosage: 100MCG Q12H

REACTIONS (1)
  - FOREIGN BODY ASPIRATION [None]
